FAERS Safety Report 12944568 (Version 1)
Quarter: 2016Q4

REPORT INFORMATION
  Report Type: Spontaneous
  Country: US (occurrence: US)
  Receive Date: 20161115
  Receipt Date: 20161115
  Transmission Date: 20170207
  Serious: No
  Sender: FDA-Public Use
  Company Number: None

PATIENT
  Age: 20 Year
  Sex: Female

DRUGS (5)
  1. VITAMIN B12 [Concomitant]
     Active Substance: CYANOCOBALAMIN
  2. RASBERRY LEAF TEA [Concomitant]
  3. STADOL [Suspect]
     Active Substance: BUTORPHANOL TARTRATE
     Indication: LABOUR PAIN
     Dosage: INTRAVENOUS (NOT OTHERWISE SPECIFIED)
     Route: 042
  4. FOLIC ACID. [Concomitant]
     Active Substance: FOLIC ACID
  5. VITAMIN D [Concomitant]
     Active Substance: CHOLECALCIFEROL

REACTIONS (4)
  - Visual impairment [None]
  - Unevaluable event [None]
  - Pain [None]
  - Nausea [None]

NARRATIVE: CASE EVENT DATE: 20160824
